FAERS Safety Report 6446375-3 (Version None)
Quarter: 2009Q4

REPORT INFORMATION
  Report Type: 
  Country: None (occurrence: None)
  Receive Date: 20091116
  Receipt Date: 20091103
  Transmission Date: 20100525
  Serious: Yes (Hospitalization)
  Sender: FDA-Public Use
  Company Number: 90378

PATIENT
  Sex: Female

DRUGS (1)
  1. OCTREOTIDE ACETATE [Suspect]
     Indication: CARCINOID SYNDROME
     Dosage: 0.3ML

REACTIONS (6)
  - EAR INFECTION [None]
  - FACIAL PALSY [None]
  - MEDICATION ERROR [None]
  - NEURALGIA [None]
  - PRODUCT SUBSTITUTION ISSUE [None]
  - TREMOR [None]
